FAERS Safety Report 21087206 (Version 3)
Quarter: 2022Q4

REPORT INFORMATION
  Report Type: Report from Study
  Country: IE (occurrence: IE)
  Receive Date: 20220715
  Receipt Date: 20221031
  Transmission Date: 20230112
  Serious: Yes (Other)
  Sender: FDA-Public Use
  Company Number: IE-BRISTOL-MYERS SQUIBB COMPANY-BMS-2021-141449

PATIENT
  Age: 59 Year
  Sex: Male

DRUGS (3)
  1. NIVOLUMAB [Suspect]
     Active Substance: NIVOLUMAB
     Indication: Metastatic malignant melanoma
     Dosage: STOP DATE: ONGOING.
     Route: 065
     Dates: start: 20211221
  2. NIVOLUMAB [Suspect]
     Active Substance: NIVOLUMAB
     Route: 065
     Dates: start: 20221021
  3. IPILIMUMAB [Suspect]
     Active Substance: IPILIMUMAB
     Indication: Metastatic malignant melanoma
     Dosage: STOP DATE: ONGOING.
     Route: 065
     Dates: start: 20211221

REACTIONS (13)
  - Procedural pain [Recovering/Resolving]
  - Colitis [Recovering/Resolving]
  - Hypothyroidism [Not Recovered/Not Resolved]
  - Neoplasm [Recovering/Resolving]
  - Gastrointestinal disorder [Unknown]
  - Headache [Unknown]
  - Dry mouth [Not Recovered/Not Resolved]
  - Thyroid function test abnormal [Not Recovered/Not Resolved]
  - Rash [Not Recovered/Not Resolved]
  - Pruritus [Not Recovered/Not Resolved]
  - Rash macular [Unknown]
  - Weight decreased [Unknown]
  - Abdominal discomfort [Unknown]

NARRATIVE: CASE EVENT DATE: 20211222
